FAERS Safety Report 19419949 (Version 1)
Quarter: 2021Q2

REPORT INFORMATION
  Report Type: Spontaneous
  Country: GB (occurrence: GB)
  Receive Date: 20210615
  Receipt Date: 20210615
  Transmission Date: 20210717
  Serious: Yes (Other)
  Sender: FDA-Public Use
  Company Number: GB-PFIZER INC-2021657722

PATIENT
  Age: 36 Year
  Sex: Female
  Weight: 135.16 kg

DRUGS (1)
  1. SAYANA PRESS [Suspect]
     Active Substance: MEDROXYPROGESTERONE\MEDROXYPROGESTERONE ACETATE
     Indication: CONTRACEPTION
     Route: 051
     Dates: start: 20201209, end: 20210604

REACTIONS (2)
  - Medication error [Unknown]
  - Alopecia [Unknown]

NARRATIVE: CASE EVENT DATE: 20210113
